FAERS Safety Report 11242479 (Version 1)
Quarter: 2015Q3

REPORT INFORMATION
  Report Type: Spontaneous
  Country: US (occurrence: US)
  Receive Date: 20150707
  Receipt Date: 20150707
  Transmission Date: 20151125
  Serious: Yes (Death, Life-Threatening)
  Sender: FDA-Public Use
  Company Number: US-ROCHE-1597856

PATIENT
  Age: 79 Year
  Sex: Female
  Weight: 62.65 kg

DRUGS (2)
  1. GAZYVA [Suspect]
     Active Substance: OBINUTUZUMAB
     Indication: CHRONIC LYMPHOCYTIC LEUKAEMIA
     Dosage: FREQUENCY AS PER PROTOCOL.
     Route: 042
     Dates: start: 20150209, end: 20150223
  2. CHLORAMBUCIL [Concomitant]
     Active Substance: CHLORAMBUCIL
     Indication: CHRONIC LYMPHOCYTIC LEUKAEMIA
     Route: 048
     Dates: start: 20150209, end: 20150223

REACTIONS (7)
  - Hypothermia [Fatal]
  - Sepsis [Fatal]
  - Hypotension [Fatal]
  - Neutropenia [Unknown]
  - Haemoglobin decreased [Unknown]
  - Acidosis [Fatal]
  - Pyrexia [Recovering/Resolving]

NARRATIVE: CASE EVENT DATE: 20150309
